FAERS Safety Report 8492821-3 (Version None)
Quarter: 2012Q3

REPORT INFORMATION
  Report Type: 
  Country: None (occurrence: None)
  Receive Date: 20120706
  Receipt Date: 20120626
  Transmission Date: 20120928
  Serious: Yes (Hospitalization, Other)
  Sender: FDA-Public Use
  Company Number: FR-JNJFOC-20120613951

PATIENT
  Age: 53 Year
  Sex: Female

DRUGS (12)
  1. OROCAL D3 [Concomitant]
     Route: 065
  2. ATORVASTATIN [Suspect]
     Indication: PRODUCT USED FOR UNKNOWN INDICATION
     Route: 048
     Dates: end: 20120107
  3. ALUMINUM HYDROXIDE AND MAGNESIUM TRISILICATE [Concomitant]
     Route: 065
  4. REMICADE [Suspect]
     Indication: PRODUCT USED FOR UNKNOWN INDICATION
     Route: 042
     Dates: start: 20111123
  5. KETOPROFEN [Suspect]
     Indication: PRODUCT USED FOR UNKNOWN INDICATION
     Route: 048
     Dates: end: 20120107
  6. REMICADE [Suspect]
     Dosage: SECOND INFUSION
     Route: 042
     Dates: start: 20111209, end: 20111209
  7. OMEPRAZOLE [Suspect]
     Indication: PRODUCT USED FOR UNKNOWN INDICATION
     Route: 048
     Dates: end: 20120107
  8. AMLODIPINE BESYLATE AND OLMESARTAN MEDOXOMIL [Concomitant]
     Route: 065
  9. RIFAMPIN AND ISONIAZID [Suspect]
     Indication: PRODUCT USED FOR UNKNOWN INDICATION
     Dosage: 2 DF (UNSPECIFIED)
     Route: 048
     Dates: start: 20111029, end: 20111231
  10. PAROXETINE HCL [Concomitant]
     Route: 065
  11. LYRICA [Concomitant]
     Route: 065
  12. ACUPAN [Concomitant]
     Route: 065

REACTIONS (3)
  - ANTINUCLEAR ANTIBODY POSITIVE [None]
  - CYTOLYTIC HEPATITIS [None]
  - CHOLELITHIASIS [None]
